FAERS Safety Report 14986644 (Version 3)
Quarter: 2018Q4

REPORT INFORMATION
  Report Type: Spontaneous
  Country: US (occurrence: US)
  Receive Date: 20180608
  Receipt Date: 20181219
  Transmission Date: 20190204
  Serious: Yes (Other)
  Sender: FDA-Public Use
  Company Number: US-CONCORDIA PHARMACEUTICALS INC.-GSH201805-001809

PATIENT
  Sex: Female

DRUGS (10)
  1. TETANUS TOXOID [Concomitant]
     Active Substance: TETANUS TOXOIDS
  2. XELJANZ [Concomitant]
     Active Substance: TOFACITINIB CITRATE
  3. PLAQUENIL [Suspect]
     Active Substance: HYDROXYCHLOROQUINE SULFATE
     Indication: RHEUMATOID ARTHRITIS
     Route: 065
  4. CODEINE SULFATE. [Concomitant]
     Active Substance: CODEINE SULFATE
  5. TRAMADOL. [Concomitant]
     Active Substance: TRAMADOL
  6. MORPHINE [Concomitant]
     Active Substance: MORPHINE
  7. ARAVA [Suspect]
     Active Substance: LEFLUNOMIDE
     Indication: RHEUMATOID ARTHRITIS
     Route: 065
  8. ORENCIA [Suspect]
     Active Substance: ABATACEPT
     Indication: RHEUMATOID ARTHRITIS
     Route: 065
  9. DILANTIN D.A [Concomitant]
     Active Substance: PHENYTOIN SODIUM
  10. METHOTREXATE. [Suspect]
     Active Substance: METHOTREXATE
     Indication: RHEUMATOID ARTHRITIS
     Route: 065
     Dates: start: 2013

REACTIONS (4)
  - Lung infection [Unknown]
  - Interstitial lung disease [Unknown]
  - Pulmonary fibrosis [Unknown]
  - Lung disorder [Unknown]
